FAERS Safety Report 9818174 (Version 1)
Quarter: 2014Q1

REPORT INFORMATION
  Report Type: Spontaneous
  Country: FI (occurrence: FI)
  Receive Date: 20140115
  Receipt Date: 20140115
  Transmission Date: 20141002
  Serious: Yes (Death)
  Sender: FDA-Public Use
  Company Number: FI-ASTELLAS-2014US000343

PATIENT
  Age: 39 Year
  Sex: Male

DRUGS (2)
  1. AMBISOME [Suspect]
     Indication: FEBRILE NEUTROPENIA
     Dosage: 2.5 MG/KG, UID/QD
     Route: 065
  2. AMBISOME [Suspect]
     Indication: MUCOSAL INFLAMMATION

REACTIONS (1)
  - Drug ineffective [Fatal]
